FAERS Safety Report 14551820 (Version 1)
Quarter: 2018Q1

REPORT INFORMATION
  Report Type: Spontaneous
  Country: US (occurrence: US)
  Receive Date: 20180220
  Receipt Date: 20180220
  Transmission Date: 20180509
  Serious: No
  Sender: FDA-Public Use
  Company Number: US-009507513-1802USA009362

PATIENT
  Age: 44 Year
  Sex: Female

DRUGS (1)
  1. SINGULAIR [Suspect]
     Active Substance: MONTELUKAST SODIUM
     Dosage: UNK
     Route: 048
     Dates: end: 2018

REACTIONS (2)
  - Liver function test increased [Unknown]
  - Liver function test increased [Unknown]

NARRATIVE: CASE EVENT DATE: 20170603
